FAERS Safety Report 4465921-2 (Version None)
Quarter: 2004Q3

REPORT INFORMATION
  Report Type: 
  Country: None (occurrence: None)
  Receive Date: 20040930
  Receipt Date: 20040930
  Transmission Date: 20050211
  Serious: Yes (Other)
  Sender: FDA-Public Use
  Company Number: None

PATIENT
  Age: 32 Year
  Sex: Female
  Weight: 79.3795 kg

DRUGS (2)
  1. ZOLOFT [Suspect]
     Indication: DEPRESSION
     Dosage: 1 PER DAY ORAL
     Route: 048
     Dates: start: 20010222, end: 20031201
  2. ZOLOFT [Suspect]
     Indication: PAIN
     Dosage: 1 PER DAY ORAL
     Route: 048
     Dates: start: 20010222, end: 20031201

REACTIONS (2)
  - CONDITION AGGRAVATED [None]
  - SUICIDAL IDEATION [None]
